FAERS Safety Report 4375557-X (Version None)
Quarter: 2004Q2

REPORT INFORMATION
  Report Type: 
  Country: None (occurrence: None)
  Receive Date: 20040607
  Receipt Date: 20040525
  Transmission Date: 20050107
  Serious: Yes (Hospitalization)
  Sender: FDA-Public Use
  Company Number: HQWYE113626MAY04

PATIENT
  Age: 48 Year
  Sex: Female
  Weight: 67.19 kg

DRUGS (4)
  1. PREMPRO [Suspect]
  2. ESTRADIOL [Suspect]
     Dosage: 1MG 1X DAY
     Route: 048
  3. COZAAR [Concomitant]
  4. EFFEXOR XR [Concomitant]

REACTIONS (3)
  - CERVIX CARCINOMA [None]
  - GALLBLADDER DISORDER [None]
  - LIVER DISORDER [None]
